FAERS Safety Report 6477774-1 (Version None)
Quarter: 2009Q4

REPORT INFORMATION
  Report Type: 
  Country: None (occurrence: None)
  Receive Date: 20091207
  Receipt Date: 20091123
  Transmission Date: 20100525
  Serious: Yes (Other)
  Sender: FDA-Public Use
  Company Number: PT-ELI_LILLY_AND_COMPANY-PT200911005693

PATIENT
  Age: 65 Year
  Sex: Male
  Weight: 67 kg

DRUGS (5)
  1. CIALIS [Suspect]
     Indication: ERECTILE DYSFUNCTION
     Dosage: 20 MG, AS NEEDED
     Route: 065
     Dates: start: 20080701
  2. CIALIS [Suspect]
     Dosage: 20 MG, AS NEEDED
     Route: 065
     Dates: start: 20090801, end: 20090101
  3. FINASTERIDE [Concomitant]
     Indication: BENIGN PROSTATIC HYPERPLASIA
     Dosage: 5 MG, UNKNOWN
     Route: 048
     Dates: start: 19990101
  4. NIFEDIPINE [Concomitant]
     Indication: HYPERTENSION
     Dosage: 30 MG, UNKNOWN
     Route: 048
     Dates: start: 19990101
  5. LORAZEPAM [Concomitant]
     Dosage: 2.5 MG, UNKNOWN
     Route: 048
     Dates: start: 20070801

REACTIONS (1)
  - PENIS DEVIATION [None]
